FAERS Safety Report 9051533 (Version 3)
Quarter: 2013Q4

REPORT INFORMATION
  Report Type: Report from Study
  Country: GB (occurrence: GB)
  Receive Date: 20130207
  Receipt Date: 20131212
  Transmission Date: 20140711
  Serious: Yes (Hospitalization)
  Sender: FDA-Public Use
  Company Number: GB-009507513-1302GBR000568

PATIENT
  Age: 59 Year
  Sex: Male

DRUGS (11)
  1. DEXAMETHASONE [Suspect]
     Indication: PLASMA CELL MYELOMA
     Dosage: 40 MG, QD
     Route: 048
     Dates: start: 20120904
  2. DEXAMETHASONE [Suspect]
     Dosage: 8 MG, QD
     Route: 041
     Dates: start: 20120904
  3. ELOTUZUMAB [Suspect]
     Indication: PLASMA CELL MYELOMA
     Dosage: 750 MG, QD
     Route: 041
     Dates: start: 20120904
  4. REVLIMID [Suspect]
     Indication: PLASMA CELL MYELOMA
     Dosage: 25 MG, QD
     Route: 048
     Dates: start: 20120904
  5. ACYCLOVIR [Concomitant]
     Dosage: UNK
     Dates: start: 20120904
  6. ALLOPURINOL [Concomitant]
     Dosage: UNK
     Dates: start: 20120904
  7. ASPIRINE [Concomitant]
     Dosage: UNK
     Dates: start: 20120904
  8. SULFAMETHOXAZOLE (+) TRIMETHOPRIM [Concomitant]
     Dosage: UNK
     Dates: start: 20120904
  9. LANSOPRAZOLE [Concomitant]
     Dosage: UNK
     Dates: start: 20120904
  10. ZOMETA [Concomitant]
     Dosage: UNK
     Dates: start: 201201
  11. CANESTEN [Concomitant]
     Dosage: UNK
     Dates: start: 20120904

REACTIONS (1)
  - Febrile neutropenia [Recovered/Resolved]
